FAERS Safety Report 7495677-0 (Version None)
Quarter: 2011Q2

REPORT INFORMATION
  Report Type: 
  Country: None (occurrence: None)
  Receive Date: 20110523
  Receipt Date: 20110512
  Transmission Date: 20111010
  Serious: Yes (Other)
  Sender: FDA-Public Use
  Company Number: US-PFIZER INC-2011101911

PATIENT
  Sex: Male

DRUGS (1)
  1. SUTENT [Suspect]
     Dosage: UNK

REACTIONS (4)
  - BLOOD CREATINE INCREASED [None]
  - HAEMATOCRIT DECREASED [None]
  - INTESTINAL PERFORATION [None]
  - HAEMATOCHEZIA [None]
